FAERS Safety Report 7081429-2 (Version None)
Quarter: 2010Q4

REPORT INFORMATION
  Report Type: 
  Country: None (occurrence: None)
  Receive Date: 20101025
  Receipt Date: 20101014
  Transmission Date: 20110411
  Serious: Yes (Other)
  Sender: FDA-Public Use
  Company Number: 1000016932

PATIENT
  Age: 47 Year
  Sex: Female
  Weight: 55 kg

DRUGS (1)
  1. ESCITALOPRAM [Suspect]
     Indication: DEPRESSION
     Dosage: 15 MG (15 MG,1 IN 1 D),ORAL
     Route: 048
     Dates: start: 20081126

REACTIONS (1)
  - MULTIPLE SCLEROSIS RELAPSE [None]
